FAERS Safety Report 24384494 (Version 1)
Quarter: 2024Q4

REPORT INFORMATION
  Report Type: Spontaneous
  Country: CA (occurrence: CA)
  Receive Date: 20241001
  Receipt Date: 20241001
  Transmission Date: 20250114
  Serious: Yes (Other)
  Sender: FRESENIUS KABI
  Company Number: CA-FreseniusKabi-FK202414195

PATIENT
  Age: 69 Year
  Sex: Female
  Weight: 70 kg

DRUGS (5)
  1. FENTANYL [Suspect]
     Active Substance: FENTANYL
     Indication: Pain
     Dosage: FOA-NOT SPECIFIED?ROA-UNKNOWN
  2. FENTANYL [Suspect]
     Active Substance: FENTANYL
     Indication: Pain
     Dosage: FOA-PATCH?ROA-UNKNOWN
  3. BUPROPION [Suspect]
     Active Substance: BUPROPION
     Indication: Depression
     Dosage: FOA-PATCH?ROA-UNKNOWN
  4. BENADRYL [Concomitant]
     Active Substance: DIPHENHYDRAMINE HYDROCHLORIDE
     Indication: Product used for unknown indication
     Dosage: FOA-NOT SPECIFIED
  5. GABAPENTIN [Concomitant]
     Active Substance: GABAPENTIN
     Indication: Product used for unknown indication
     Dosage: FOA-NOT SPECIFIED

REACTIONS (8)
  - Cerebral disorder [Unknown]
  - Coordination abnormal [Unknown]
  - Ear discomfort [Unknown]
  - Erythema [Unknown]
  - Insomnia [Unknown]
  - Pruritus [Unknown]
  - Respiratory depression [Unknown]
  - Skin irritation [Unknown]
